FAERS Safety Report 9017236 (Version 1)
Quarter: 2013Q1

REPORT INFORMATION
  Report Type: Spontaneous
  Country: US (occurrence: US)
  Receive Date: 20130117
  Receipt Date: 20130117
  Transmission Date: 20140127
  Serious: No
  Sender: FDA-Public Use
  Company Number: US-ASTRAZENECA-2013SE03319

PATIENT
  Sex: Female

DRUGS (2)
  1. SEROQUEL XR [Suspect]
     Indication: BIPOLAR DISORDER
     Route: 048
  2. SEROQUEL XR [Suspect]
     Indication: BIPOLAR DISORDER
     Dosage: TAKE 1/3 OF SEROQUEL
     Route: 048

REACTIONS (4)
  - Insomnia [Unknown]
  - Nervousness [Unknown]
  - Drug hypersensitivity [Unknown]
  - Intentional drug misuse [Unknown]
